FAERS Safety Report 19302738 (Version 2)
Quarter: 2021Q2

REPORT INFORMATION
  Report Type: Spontaneous
  Country: US (occurrence: US)
  Receive Date: 20210525
  Receipt Date: 20210602
  Transmission Date: 20210717
  Serious: Yes (Death, Other)
  Sender: FDA-Public Use
  Company Number: US-PFIZER INC-2021521976

PATIENT
  Age: 60 Year
  Sex: Male

DRUGS (4)
  1. NOREPINEPHRINE BITARTRATE. [Suspect]
     Active Substance: NOREPINEPHRINE BITARTRATE
     Indication: SEPTIC SHOCK
     Dosage: UNK
  2. PHENYLEPHRINE [Suspect]
     Active Substance: PHENYLEPHRINE HYDROCHLORIDE
     Indication: ARRHYTHMIA
     Dosage: UNK
  3. VASOPRESSIN. [Suspect]
     Active Substance: VASOPRESSIN
     Indication: HYPOTENSION
     Dosage: UNK
  4. NOREPINEPHRINE BITARTRATE. [Suspect]
     Active Substance: NOREPINEPHRINE BITARTRATE
     Indication: HYPOTENSION

REACTIONS (4)
  - Hypotension [Not Recovered/Not Resolved]
  - Acute respiratory distress syndrome [Fatal]
  - Pulmonary oedema [Not Recovered/Not Resolved]
  - Mitral valve incompetence [Not Recovered/Not Resolved]
